FAERS Safety Report 7015894-3 (Version None)
Quarter: 2010Q3

REPORT INFORMATION
  Report Type: 
  Country: None (occurrence: None)
  Receive Date: 20100927
  Receipt Date: 20090810
  Transmission Date: 20110219
  Serious: No
  Sender: FDA-Public Use
  Company Number: US-ASTRAZENECA-2009SE07635

PATIENT
  Age: 797 Month
  Sex: Female
  Weight: 74.8 kg

DRUGS (3)
  1. ARIMIDEX [Suspect]
     Route: 048
     Dates: start: 20080101
  2. XANAX [Concomitant]
  3. CYMBALTA [Concomitant]

REACTIONS (6)
  - ARTHRALGIA [None]
  - ARTHRITIS [None]
  - CONSTIPATION [None]
  - FATIGUE [None]
  - FIBROMYALGIA [None]
  - HYPERHIDROSIS [None]
